FAERS Safety Report 13614592 (Version 1)
Quarter: 2017Q2

REPORT INFORMATION
  Report Type: Spontaneous
  Country: US (occurrence: US)
  Receive Date: 20170606
  Receipt Date: 20170606
  Transmission Date: 20170830
  Serious: No
  Sender: FDA-Public Use
  Company Number: US-AUROBINDO-AUR-APU-2016-15110

PATIENT
  Sex: Male

DRUGS (1)
  1. ACETAMINOPHEN AND CODEINE 300 MG/60 MG [Suspect]
     Active Substance: ACETAMINOPHEN\CODEINE PHOSPHATE
     Indication: PAIN
     Dosage: ONE PILL FOR EVERY 4 HOURS
     Route: 065
     Dates: start: 20160111

REACTIONS (3)
  - Product substitution issue [Unknown]
  - Product substitution issue [None]
  - Drug ineffective [Unknown]
